FAERS Safety Report 6031069-9 (Version None)
Quarter: 2008Q4

REPORT INFORMATION
  Report Type: 
  Country: None (occurrence: None)
  Receive Date: 20081222
  Receipt Date: 20081117
  Transmission Date: 20090506
  Serious: No
  Sender: FDA-Public Use
  Company Number: US-WYE-H06870908

PATIENT
  Age: 53 Year
  Sex: Female
  Weight: 51.76 kg

DRUGS (7)
  1. PRISTIQ [Suspect]
     Indication: DEPRESSION
     Dosage: 50 MG 1X PER 1 DAY, ORAL
     Route: 048
     Dates: start: 20081114
  2. KLONOPIN [Concomitant]
  3. DURAGESIC-100 [Concomitant]
  4. CYMBALTA [Concomitant]
  5. AMBIEN [Concomitant]
  6. METHOCARBAMOL [Concomitant]
  7. PREMARIN [Concomitant]

REACTIONS (10)
  - ANXIETY [None]
  - CONDITION AGGRAVATED [None]
  - CONSTIPATION [None]
  - CRYING [None]
  - DEPRESSION [None]
  - DIARRHOEA [None]
  - FATIGUE [None]
  - INSOMNIA [None]
  - NERVOUSNESS [None]
  - SOMNOLENCE [None]
